FAERS Safety Report 17050377 (Version 1)
Quarter: 2019Q4

REPORT INFORMATION
  Report Type: Report from Study
  Country: None (occurrence: US)
  Receive Date: 20191119
  Receipt Date: 20191119
  Transmission Date: 20200122
  Serious: Yes (Hospitalization)
  Sender: FDA-Public Use
  Company Number: US-ABBVIE-19P-163-2992068-00

PATIENT
  Age: 40 Year
  Sex: Male
  Weight: 181.6 kg

DRUGS (1)
  1. SKYRIZI [Suspect]
     Active Substance: RISANKIZUMAB-RZAA
     Indication: PSORIASIS
     Route: 058
     Dates: start: 201907

REACTIONS (6)
  - Streptococcal infection [Recovered/Resolved]
  - Atrial flutter [Recovering/Resolving]
  - Pain in extremity [Recovered/Resolved]
  - Malaise [Recovered/Resolved]
  - Asthenia [Recovered/Resolved]
  - Localised infection [Recovering/Resolving]

NARRATIVE: CASE EVENT DATE: 201907
